FAERS Safety Report 23314463 (Version 4)
Quarter: 2024Q4

REPORT INFORMATION
  Report Type: Report from Study
  Country: CA (occurrence: US)
  Receive Date: 20231219
  Receipt Date: 20241227
  Transmission Date: 20250115
  Serious: Yes (Hospitalization)
  Sender: RIGEL PHARMACEUTICALS
  Company Number: CA-RIGEL PHARMACEUTICALS, INC.-2023FOS001341

PATIENT
  Sex: Female

DRUGS (3)
  1. FOSTAMATINIB DISODIUM [Suspect]
     Active Substance: FOSTAMATINIB DISODIUM
     Indication: Product used for unknown indication
     Dosage: 100MG EVERY 2 DAYS
     Route: 048
     Dates: start: 20220916
  2. FOSTAMATINIB DISODIUM [Suspect]
     Active Substance: FOSTAMATINIB DISODIUM
     Indication: Immune thrombocytopenia
     Dosage: 100 MG, 2 PER DAY
     Route: 048
     Dates: start: 20230916
  3. FOSTAMATINIB DISODIUM [Suspect]
     Active Substance: FOSTAMATINIB DISODIUM
     Dosage: 100MG EVERY OTHER DAY
     Route: 048
     Dates: start: 2024

REACTIONS (5)
  - Hospitalisation [Unknown]
  - Platelet count decreased [Unknown]
  - Adverse drug reaction [Unknown]
  - Unevaluable event [Not Recovered/Not Resolved]
  - Product use issue [Unknown]
